FAERS Safety Report 7433537-1 (Version None)
Quarter: 2011Q2

REPORT INFORMATION
  Report Type: 
  Country: None (occurrence: None)
  Receive Date: 20110422
  Receipt Date: 20110419
  Transmission Date: 20111010
  Serious: No
  Sender: FDA-Public Use
  Company Number: US-B.I. PHARMACEUTICALS,INC./RIDGEFIELD-2011-BP-11219BP

PATIENT
  Sex: Female

DRUGS (8)
  1. METFORMIN [Concomitant]
     Indication: DIABETES MELLITUS
     Route: 048
  2. TEKTURNA [Concomitant]
     Indication: HYPERTENSION
     Dosage: 300 MG
     Route: 048
  3. LABETALOL [Concomitant]
     Indication: HYPERTENSION
     Dosage: 400 MG
     Route: 048
  4. PRADAXA [Suspect]
     Indication: ATRIAL FIBRILLATION
     Dosage: 300 MG
     Route: 048
     Dates: start: 20110329
  5. INSULIN [Concomitant]
     Indication: DIABETES MELLITUS
     Dosage: 20 RT
     Route: 058
  6. SIMVASTATIN [Concomitant]
     Indication: BLOOD CHOLESTEROL INCREASED
     Dosage: 40 MG
     Route: 048
  7. HYDRALAZINE [Concomitant]
     Indication: HYPERTENSION
     Dosage: 100 MG
     Route: 048
  8. ENALAPRIL [Concomitant]
     Indication: HYPERTENSION
     Dosage: 40 MG
     Route: 048

REACTIONS (1)
  - FATIGUE [None]
